FAERS Safety Report 14496951 (Version 1)
Quarter: 2018Q1

REPORT INFORMATION
  Report Type: Spontaneous
  Country: US (occurrence: US)
  Receive Date: 20180207
  Receipt Date: 20180207
  Transmission Date: 20180509
  Serious: Yes (Other)
  Sender: FDA-Public Use
  Company Number: None

PATIENT

DRUGS (20)
  1. NEBULIZER [Concomitant]
     Active Substance: DEVICE
  2. LEVOTHYROXINE. [Concomitant]
     Active Substance: LEVOTHYROXINE
  3. OMEPRAZOLE. [Concomitant]
     Active Substance: OMEPRAZOLE
  4. FLAGYL [Concomitant]
     Active Substance: METRONIDAZOLE\METRONIDAZOLE HYDROCHLORIDE
  5. PROMETHAZINE [Concomitant]
     Active Substance: PROMETHAZINE\PROMETHAZINE HYDROCHLORIDE
  6. TRAMADOL. [Concomitant]
     Active Substance: TRAMADOL
  7. OXYGEN CONCENTRATOR [Concomitant]
  8. NORCO [Concomitant]
     Active Substance: ACETAMINOPHEN\HYDROCODONE BITARTRATE
  9. DAILY MULTI VITAMIN + MNERAL SUPPLEMENT [Concomitant]
  10. VITAMIN C [Concomitant]
     Active Substance: ASCORBIC ACID
  11. VALSARTAN. [Suspect]
     Active Substance: VALSARTAN
     Indication: HYPERTENSION
  12. L LYSINE [Concomitant]
  13. FLEXERIL [Concomitant]
     Active Substance: CYCLOBENZAPRINE HYDROCHLORIDE
  14. ADVAIR HFA [Concomitant]
     Active Substance: FLUTICASONE PROPIONATE\SALMETEROL XINAFOATE
  15. TRENTAL [Concomitant]
     Active Substance: PENTOXIFYLLINE
  16. METOPROLOL. [Suspect]
     Active Substance: METOPROLOL
  17. LISINOPRIL. [Suspect]
     Active Substance: LISINOPRIL
  18. OMEGA 3-6-9 [Concomitant]
     Active Substance: FISH OIL
  19. BIOTIN [Concomitant]
     Active Substance: BIOTIN
  20. HAIR/SKIN/NAILS SUPPLEMENT [Concomitant]

REACTIONS (10)
  - Amnesia [None]
  - Peripheral swelling [None]
  - Alopecia [None]
  - Fatigue [None]
  - Heart rate increased [None]
  - Weight increased [None]
  - Chest pain [None]
  - Impaired quality of life [None]
  - Headache [None]
  - Feeling abnormal [None]
